FAERS Safety Report 5073207-0 (Version None)
Quarter: 2006Q3

REPORT INFORMATION
  Report Type: 
  Country: None (occurrence: None)
  Receive Date: 20060802
  Receipt Date: 20060801
  Transmission Date: 20061208
  Serious: Yes (Death)
  Sender: FDA-Public Use
  Company Number: 225484

PATIENT
  Age: 63 Year
  Sex: Female
  Weight: 50 kg

DRUGS (6)
  1. AVASTIN [Suspect]
     Indication: NON-SMALL CELL LUNG CANCER
     Dosage: 15 MG/KG, INTRAVENOUS
     Route: 042
     Dates: start: 20060505
  2. AVASTIN [Suspect]
  3. AVASTIN [Suspect]
  4. CARBOPLATIN [Concomitant]
  5. TAXOL [Concomitant]
  6. LORAZEPAM [Concomitant]

REACTIONS (1)
  - TUMOUR HAEMORRHAGE [None]
